FAERS Safety Report 8820951 (Version 1)
Quarter: 2012Q4

REPORT INFORMATION
  Report Type: Report from Study
  Country: CR (occurrence: CR)
  Receive Date: 20121002
  Receipt Date: 20121002
  Transmission Date: 20130627
  Serious: Yes (Death, Hospitalization)
  Sender: FDA-Public Use
  Company Number: CR-ROCHE-1135133

PATIENT
  Sex: Female

DRUGS (4)
  1. BONVIVA [Suspect]
     Indication: OSTEOPOROSIS
     Route: 048
     Dates: start: 20090729
  2. IRBESARTAN [Concomitant]
     Indication: HYPERTENSION
  3. SALBUTAMOL [Concomitant]
     Route: 065
  4. CALCIUM [Concomitant]

REACTIONS (2)
  - Renal failure acute [Fatal]
  - Decreased appetite [Unknown]
